FAERS Safety Report 8266852-2 (Version None)
Quarter: 2012Q2

REPORT INFORMATION
  Report Type: 
  Country: None (occurrence: None)
  Receive Date: 20120409
  Receipt Date: 20120330
  Transmission Date: 20120825
  Serious: No
  Sender: FDA-Public Use
  Company Number: US-BIOGENIDEC-2012BI011505

PATIENT
  Sex: Female

DRUGS (2)
  1. TYSABRI [Suspect]
     Indication: MULTIPLE SCLEROSIS
     Route: 042
     Dates: start: 20080731, end: 20110803
  2. TYSABRI [Suspect]
     Route: 042
     Dates: start: 20120214

REACTIONS (6)
  - CENTRAL NERVOUS SYSTEM LESION [None]
  - FALL [None]
  - LOSS OF CONSCIOUSNESS [None]
  - ANXIETY [None]
  - GAIT DISTURBANCE [None]
  - LIMB INJURY [None]
